FAERS Safety Report 4677519-1 (Version None)
Quarter: 2005Q2

REPORT INFORMATION
  Report Type: 
  Country: None (occurrence: None)
  Receive Date: 20050525
  Receipt Date: 20050525
  Transmission Date: 20051028
  Serious: Yes (Other)
  Sender: FDA-Public Use
  Company Number: None

PATIENT
  Age: 77 Year
  Sex: Male
  Weight: 67.6 kg

DRUGS (10)
  1. PREDNISONE [Suspect]
  2. TRIAMCINOLONE CREAM [Concomitant]
  3. RISPERIDONE [Concomitant]
  4. PREDNISONE TAB [Concomitant]
  5. OMEPRAZOLE [Concomitant]
  6. GLIPIZIDE [Concomitant]
  7. FERROUS SULFATE [Concomitant]
  8. CITALOPRAM [Concomitant]
  9. ATENOLOL [Concomitant]
  10. HYDROXYZINE [Concomitant]

REACTIONS (1)
  - HYPERGLYCAEMIA [None]
